FAERS Safety Report 17209101 (Version 1)
Quarter: 2019Q4

REPORT INFORMATION
  Report Type: Spontaneous
  Country: US (occurrence: US)
  Receive Date: 20191227
  Receipt Date: 20191227
  Transmission Date: 20200122
  Serious: Yes (Other)
  Sender: FDA-Public Use
  Company Number: US-OSMOTICA_PHARMACEUTICAL_US_LLC-POI0573201900531

PATIENT
  Age: 80 Year
  Sex: Male
  Weight: 67.19 kg

DRUGS (3)
  1. OSMOLEX ER [Suspect]
     Active Substance: AMANTADINE
     Indication: PARKINSON^S DISEASE
     Dates: start: 201906, end: 20190723
  2. OSMOLEX ER [Suspect]
     Active Substance: AMANTADINE
     Dates: start: 20190724, end: 20191116
  3. OSMOLEX ER [Suspect]
     Active Substance: AMANTADINE
     Dates: start: 20191117, end: 20191125

REACTIONS (4)
  - Adrenal gland cancer [Unknown]
  - Uterine cancer [Unknown]
  - Lung carcinoma cell type unspecified recurrent [Unknown]
  - Cough [Unknown]

NARRATIVE: CASE EVENT DATE: 201908
